FAERS Safety Report 4697075-1 (Version None)
Quarter: 2005Q2

REPORT INFORMATION
  Report Type: 
  Country: None (occurrence: None)
  Receive Date: 20050622
  Receipt Date: 20050104
  Transmission Date: 20051028
  Serious: Yes (Hospitalization)
  Sender: FDA-Public Use
  Company Number: DE-MERCK-0501DEU00082

PATIENT
  Age: 49 Year
  Sex: Male

DRUGS (3)
  1. VIOXX [Suspect]
     Indication: OSTEOARTHRITIS
     Route: 048
     Dates: start: 20020304, end: 20020301
  2. VIOXX [Suspect]
     Route: 048
     Dates: start: 20030812, end: 20040101
  3. VIOXX [Suspect]
     Route: 048
     Dates: start: 20021017

REACTIONS (6)
  - GASTRITIS EROSIVE [None]
  - HYPERTENSION [None]
  - HYPERTENSIVE CRISIS [None]
  - MUCOUS MEMBRANE DISORDER [None]
  - REFLUX OESOPHAGITIS [None]
  - SINOATRIAL BLOCK [None]
